FAERS Safety Report 9688333 (Version 2)
Quarter: 2013Q4

REPORT INFORMATION
  Report Type: Spontaneous
  Country: MY (occurrence: MY)
  Receive Date: 20131114
  Receipt Date: 20131114
  Transmission Date: 20140711
  Serious: Yes (Hospitalization)
  Sender: FDA-Public Use
  Company Number: PHHY2013MY046705

PATIENT
  Age: 12 Year
  Sex: Male
  Weight: 31 kg

DRUGS (1)
  1. EXJADE [Suspect]
     Indication: THALASSAEMIA
     Dosage: 625 MG, UNK
     Dates: start: 201212

REACTIONS (5)
  - Sepsis [Unknown]
  - Neutropenia [Unknown]
  - White blood cell count decreased [Unknown]
  - Lethargy [Unknown]
  - Pyrexia [Unknown]
